FAERS Safety Report 5894795-8 (Version None)
Quarter: 2008Q3

REPORT INFORMATION
  Report Type: 
  Country: None (occurrence: None)
  Receive Date: 20080924
  Receipt Date: 20080623
  Transmission Date: 20090109
  Serious: No
  Sender: FDA-Public Use
  Company Number: US-ASTRAZENECA-2008UW12615

PATIENT
  Age: 60 Year
  Sex: Male
  Weight: 113.4 kg

DRUGS (6)
  1. SEROQUEL [Suspect]
     Route: 048
  2. PREVACID [Concomitant]
     Indication: DUODENAL ULCER HAEMORRHAGE
     Route: 048
     Dates: start: 20070201
  3. LOTREL [Concomitant]
  4. TENORETIC 50 [Concomitant]
  5. PEXEVA [Concomitant]
  6. CELEBREX [Concomitant]

REACTIONS (4)
  - BOWEL MOVEMENT IRREGULARITY [None]
  - CONSTIPATION [None]
  - DYSPEPSIA [None]
  - FAECES DISCOLOURED [None]
